FAERS Safety Report 23957406 (Version 1)
Quarter: 2024Q2

REPORT INFORMATION
  Report Type: Spontaneous
  Country: US (occurrence: None)
  Receive Date: 20240610
  Receipt Date: 20240610
  Transmission Date: 20240715
  Serious: Yes (Other)
  Sender: FDA-Public Use
  Company Number: US-INFO-20230172

PATIENT

DRUGS (1)
  1. NOREPINEPHRINE [Suspect]
     Active Substance: NOREPINEPHRINE\NOREPINEPHRINE BITARTRATE
     Dosage: ()
     Route: 042

REACTIONS (3)
  - Product packaging issue [Unknown]
  - Drug dose omission by device [Unknown]
  - No adverse event [Unknown]
